FAERS Safety Report 14703276 (Version 1)
Quarter: 2018Q2

REPORT INFORMATION
  Report Type: Spontaneous
  Country: US (occurrence: US)
  Receive Date: 20180402
  Receipt Date: 20180402
  Transmission Date: 20180711
  Serious: Yes (Hospitalization, Other)
  Sender: FDA-Public Use
  Company Number: US-STRIDES ARCOLAB LIMITED-2018SP002357

PATIENT

DRUGS (6)
  1. PREDNISOLONE. [Suspect]
     Active Substance: PREDNISOLONE
     Dosage: 20 MG PER DAY
     Route: 065
  2. PREDNISOLONE. [Suspect]
     Active Substance: PREDNISOLONE
     Indication: HEART TRANSPLANT
     Dosage: 10 MG PER DAY
     Route: 065
  3. PREDNISOLONE. [Suspect]
     Active Substance: PREDNISOLONE
     Dosage: UNK (TAPERED)
     Route: 065
  4. MYCOPHENOLATE MOFETIL. [Suspect]
     Active Substance: MYCOPHENOLATE MOFETIL
     Indication: HEART TRANSPLANT
     Dosage: UNK
     Route: 065
  5. METHYLPREDNISOLONE. [Suspect]
     Active Substance: METHYLPREDNISOLONE
     Indication: TRANSPLANT REJECTION
     Dosage: 500 MG PER DAY
     Route: 042
  6. TACROLIMUS. [Suspect]
     Active Substance: TACROLIMUS
     Indication: HEART TRANSPLANT
     Dosage: UNK
     Route: 065

REACTIONS (5)
  - Fatigue [Unknown]
  - Adrenal insufficiency [Recovered/Resolved]
  - Transplant rejection [Unknown]
  - Vomiting [Unknown]
  - Diarrhoea [Recovered/Resolved]
